FAERS Safety Report 6649778-7 (Version None)
Quarter: 2010Q1

REPORT INFORMATION
  Report Type: 
  Country: None (occurrence: None)
  Receive Date: 20100322
  Receipt Date: 20100312
  Transmission Date: 20100710
  Serious: Yes (Other)
  Sender: FDA-Public Use
  Company Number: 2010SP004600

PATIENT
  Age: 59 Year
  Sex: Male

DRUGS (7)
  1. ASMANEX TWISTHALER [Suspect]
     Indication: ASTHMA
     Dosage: 1 DF; QD INH
     Route: 055
     Dates: start: 20100113
  2. LOTREL [Concomitant]
  3. COREG [Concomitant]
  4. LOZOL [Concomitant]
  5. JANUMET [Concomitant]
  6. FISH OIL [Concomitant]
  7. MULTI-VITAMIN [Concomitant]

REACTIONS (16)
  - ANGINA PECTORIS [None]
  - ANXIETY [None]
  - BLOOD PRESSURE INCREASED [None]
  - DIZZINESS [None]
  - DRUG DOSE OMISSION [None]
  - ELECTROCARDIOGRAM QT PROLONGED [None]
  - EXTRASYSTOLES [None]
  - FALL [None]
  - FEELING ABNORMAL [None]
  - HOT FLUSH [None]
  - LOSS OF CONSCIOUSNESS [None]
  - MUSCLE SPASMS [None]
  - MYALGIA [None]
  - OVERDOSE [None]
  - PALPITATIONS [None]
  - RASH MACULAR [None]
